FAERS Safety Report 21297987 (Version 2)
Quarter: 2022Q3

REPORT INFORMATION
  Report Type: Report from Study
  Country: ES (occurrence: ES)
  Receive Date: 20220906
  Receipt Date: 20220913
  Transmission Date: 20221027
  Serious: Yes (Other)
  Sender: FDA-Public Use
  Company Number: ES-BAYER-2022A124223

PATIENT
  Age: 51 Year
  Sex: Female

DRUGS (2)
  1. RIVAROXABAN [Suspect]
     Active Substance: RIVAROXABAN
     Indication: Product used for unknown indication
     Dosage: UNK
     Route: 048
  2. ACEMETACIN [Suspect]
     Active Substance: ACEMETACIN

REACTIONS (1)
  - Drug-induced liver injury [Unknown]
